FAERS Safety Report 9764261 (Version 1)
Quarter: 2013Q4

REPORT INFORMATION
  Report Type: Spontaneous
  Country: JP (occurrence: JP)
  Receive Date: 20131216
  Receipt Date: 20131216
  Transmission Date: 20140711
  Serious: Yes (Hospitalization)
  Sender: FDA-Public Use
  Company Number: JP-ELI_LILLY_AND_COMPANY-JP201312002497

PATIENT
  Age: 81 Year
  Sex: Male
  Weight: 50 kg

DRUGS (4)
  1. HUMALOG 50% LISPRO, 50% NPL [Suspect]
     Indication: TYPE 2 DIABETES MELLITUS
     Dosage: 4 IU, TID
     Route: 058
     Dates: start: 201109, end: 201110
  2. METFORMIN HYDROCHLORIDE [Concomitant]
     Dosage: 250 MG, UNK
  3. NATEGLINIDE [Concomitant]
     Dosage: 270 MG, UNK
  4. MIGLITOL [Concomitant]
     Dosage: 150 MG, UNK

REACTIONS (2)
  - Diabetes mellitus inadequate control [Recovering/Resolving]
  - Anti-insulin antibody positive [Unknown]
